FAERS Safety Report 26033515 (Version 1)
Quarter: 2025Q4

REPORT INFORMATION
  Report Type: Spontaneous
  Country: EU (occurrence: EU)
  Receive Date: 20251112
  Receipt Date: 20251112
  Transmission Date: 20260118
  Serious: Yes (Hospitalization, Other)
  Sender: AUROBINDO
  Company Number: EU-UCBSA-2025067341

PATIENT
  Age: 31 Year
  Sex: Male

DRUGS (16)
  1. LEVETIRACETAM [Suspect]
     Active Substance: LEVETIRACETAM
     Indication: Idiopathic generalised epilepsy
     Dosage: 1250 MILLIGRAM, 2X/DAY (BID)
     Route: 065
  2. LEVETIRACETAM [Suspect]
     Active Substance: LEVETIRACETAM
     Dosage: 3000 MILLIGRAM, ONCE DAILY (QD)
     Route: 065
     Dates: start: 201712
  3. LEVETIRACETAM [Suspect]
     Active Substance: LEVETIRACETAM
     Dosage: 3000 MILLIGRAM, ONCE DAILY (QD)
     Route: 065
     Dates: start: 202409
  4. LEVETIRACETAM [Suspect]
     Active Substance: LEVETIRACETAM
     Dosage: 3000 MILLIGRAM, ONCE DAILY (QD)
     Route: 065
     Dates: start: 202503, end: 20250615
  5. LACOSAMIDE [Suspect]
     Active Substance: LACOSAMIDE
     Indication: Idiopathic generalised epilepsy
     Dosage: 200 MILLIGRAM, 2X/DAY (BID)
     Route: 065
  6. LACOSAMIDE [Suspect]
     Active Substance: LACOSAMIDE
     Dosage: 300 MILLIGRAM, ONCE DAILY (QD)
     Route: 065
     Dates: start: 201712
  7. LACOSAMIDE [Suspect]
     Active Substance: LACOSAMIDE
     Dosage: 400 MILLIGRAM, ONCE DAILY (QD)
     Route: 065
     Dates: start: 202409
  8. LACOSAMIDE [Suspect]
     Active Substance: LACOSAMIDE
     Dosage: 400 MILLIGRAM, ONCE DAILY (QD)
     Route: 065
     Dates: start: 202503
  9. LAMOTRIGINE [Concomitant]
     Active Substance: LAMOTRIGINE
     Indication: Seizure
     Dosage: 275 MILLIGRAM, ONCE DAILY (QD), 150?0?125 MG
     Route: 065
  10. LAMOTRIGINE [Concomitant]
     Active Substance: LAMOTRIGINE
     Dosage: 100 MILLIGRAM, ONCE DAILY (QD)
     Route: 065
     Dates: start: 201712
  11. LAMOTRIGINE [Concomitant]
     Active Substance: LAMOTRIGINE
     Dosage: 250 MILLIGRAM, ONCE DAILY (QD)
     Route: 065
     Dates: start: 202409
  12. LAMOTRIGINE [Concomitant]
     Active Substance: LAMOTRIGINE
     Dosage: 275 MILLIGRAM, ONCE DAILY (QD), 150?0?125 MG
     Route: 065
     Dates: start: 202503
  13. LAMOTRIGINE [Concomitant]
     Active Substance: LAMOTRIGINE
     Dosage: 350 MILLIGRAM, ONCE DAILY (QD), 150?0?125 MG
     Route: 065
  14. VALPROATE [Concomitant]
     Active Substance: VALPROIC ACID
     Indication: Seizure
     Dosage: 2000 MILLIGRAM, ONCE DAILY (QD)
     Route: 065
     Dates: start: 201002
  15. VALPROATE [Concomitant]
     Active Substance: VALPROIC ACID
     Dosage: 300 MILLIGRAM, ONCE DAILY (QD)
     Route: 065
     Dates: start: 20250606
  16. VALPROATE [Concomitant]
     Active Substance: VALPROIC ACID
     Dosage: 600 MILLIGRAM, ONCE DAILY (QD)
     Route: 065
     Dates: start: 20250611

REACTIONS (5)
  - Seizure [Unknown]
  - Status epilepticus [Unknown]
  - Intellectual disability [Unknown]
  - Quadriparesis [Unknown]
  - Wheelchair user [Unknown]

NARRATIVE: CASE EVENT DATE: 20250101
